FAERS Safety Report 15435101 (Version 1)
Quarter: 2018Q3

REPORT INFORMATION
  Report Type: Spontaneous
  Country: US (occurrence: US)
  Receive Date: 20180927
  Receipt Date: 20180927
  Transmission Date: 20181010
  Serious: No
  Sender: FDA-Public Use
  Company Number: US-INDIVIOR LIMITED-INDV-111935-2018

PATIENT
  Age: 53 Year
  Sex: Male

DRUGS (5)
  1. SUBOXONE [Suspect]
     Active Substance: BUPRENORPHINE HYDROCHLORIDE\NALOXONE HYDROCHLORIDE
     Indication: DRUG WITHDRAWAL SYNDROME
     Dosage: UNK
     Route: 065
     Dates: start: 2018
  2. SUBLOCADE [Suspect]
     Active Substance: BUPRENORPHINE
     Indication: DRUG USE DISORDER
     Dosage: 300 MG, QMO
     Route: 065
     Dates: start: 20180515, end: 20180515
  3. SUBLOCADE [Suspect]
     Active Substance: BUPRENORPHINE
     Dosage: 300 MG, QMO (SECOND INJECTION)
     Route: 065
     Dates: start: 20180613, end: 20180613
  4. SUBOXONE [Suspect]
     Active Substance: BUPRENORPHINE HYDROCHLORIDE\NALOXONE HYDROCHLORIDE
     Indication: PRODUCT USED FOR UNKNOWN INDICATION
     Dosage: 16MG, UNK
     Route: 065
     Dates: end: 2018
  5. SUBLOCADE [Suspect]
     Active Substance: BUPRENORPHINE
     Dosage: 300MG, QMO
     Route: 065
     Dates: start: 20180711

REACTIONS (3)
  - Drug withdrawal syndrome [Unknown]
  - Abdominal pain upper [Unknown]
  - Ulcer [Unknown]

NARRATIVE: CASE EVENT DATE: 2018
